FAERS Safety Report 13485316 (Version 1)
Quarter: 2017Q2

REPORT INFORMATION
  Report Type: Spontaneous
  Country: GB (occurrence: GB)
  Receive Date: 20170426
  Receipt Date: 20170426
  Transmission Date: 20170830
  Serious: Yes (Other)
  Sender: FDA-Public Use
  Company Number: GB-DEXPHARM-20170584

PATIENT
  Age: 57 Year
  Sex: Male
  Weight: 96 kg

DRUGS (2)
  1. LACTULOSE SOLUTION [Concomitant]
     Active Substance: LACTULOSE
  2. OMEPRAZOLE. [Suspect]
     Active Substance: OMEPRAZOLE
     Indication: DYSPEPSIA
     Dosage: DAILY DOSE: 40 MG MILLGRAM(S) EVERY DAYS
     Route: 048
     Dates: start: 20170402, end: 20170403

REACTIONS (1)
  - Urticaria [Not Recovered/Not Resolved]

NARRATIVE: CASE EVENT DATE: 20170403
